FAERS Safety Report 4642102-0 (Version None)
Quarter: 2005Q2

REPORT INFORMATION
  Report Type: 
  Country: None (occurrence: None)
  Receive Date: 20050420
  Receipt Date: 20050406
  Transmission Date: 20051028
  Serious: Yes (Hospitalization)
  Sender: FDA-Public Use
  Company Number: 2005AP02097

PATIENT
  Age: 53 Year
  Sex: Male
  Weight: 68.3 kg

DRUGS (32)
  1. IRESSA [Suspect]
     Dosage: 250 MG DAILY PO
     Route: 048
     Dates: start: 20050207, end: 20050307
  2. IRESSA [Suspect]
     Dosage: 250 MG DAILY PO
     Route: 048
     Dates: start: 20050308, end: 20050321
  3. IRESSA [Suspect]
     Dosage: 250 MG DAILY PO
     Route: 048
     Dates: start: 20050322, end: 20050101
  4. IRESSA [Suspect]
     Dosage: 250 MG DAILY PO
     Route: 048
     Dates: start: 20050402
  5. CISPLATIN [Suspect]
     Dosage: 194 MG/M2 DAILY IV
     Route: 042
     Dates: start: 20050214, end: 20050214
  6. CISPLATIN [Suspect]
     Dosage: 193 MG/M2 DAILY IV
     Route: 042
     Dates: start: 20050307, end: 20050207
  7. CISPLATIN [Suspect]
     Dosage: 185 MG/M2 DAILY IV
     Route: 042
     Dates: start: 20050330, end: 20050330
  8. RADIOTHERAPY [Suspect]
     Dosage: 2 GY
     Dates: start: 20050214, end: 20050218
  9. RADIOTHERAPY [Suspect]
     Dosage: 2 GY
     Dates: start: 20050221, end: 20050225
  10. RADIOTHERAPY [Suspect]
     Dosage: 2 GY
     Dates: start: 20050228, end: 20050304
  11. RADIOTHERAPY [Suspect]
     Dosage: 2 GY
     Dates: start: 20050307, end: 20050311
  12. RADIOTHERAPY [Suspect]
     Dosage: 2 GY
     Dates: start: 20050314, end: 20050318
  13. RADIOTHERAPY [Suspect]
     Dosage: 2 GY
     Dates: start: 20050321, end: 20050325
  14. RADIOTHERAPY [Suspect]
     Dosage: 2 GY
     Dates: start: 20050329, end: 20050402
  15. RYTNONORN [Concomitant]
  16. CORUNO [Concomitant]
  17. LOXIDAL [Concomitant]
  18. LIPITOR [Concomitant]
  19. ASAFLOW [Concomitant]
  20. GLYVENOL [Concomitant]
  21. COVERSYL [Concomitant]
  22. CONTRAMAL [Concomitant]
  23. LYSANXIA [Concomitant]
  24. ROBINUL [Concomitant]
  25. MOVICOL [Concomitant]
  26. MORPHINE [Concomitant]
  27. ISO-BETADINE [Concomitant]
  28. AUGMENTIN '125' [Concomitant]
  29. LYSOMUCIL [Concomitant]
  30. PRIMPERAN TAB [Concomitant]
  31. DAFALGAN [Concomitant]
  32. KAMILLOSAN [Concomitant]

REACTIONS (1)
  - RENAL FAILURE [None]
